FAERS Safety Report 24164040 (Version 1)
Quarter: 2024Q3

REPORT INFORMATION
  Report Type: Spontaneous
  Country: DE (occurrence: DE)
  Receive Date: 20240801
  Receipt Date: 20240801
  Transmission Date: 20241017
  Serious: Yes (Hospitalization, Disabling)
  Sender: SANOFI AVENTIS
  Company Number: DE-DCGMA-24203673

PATIENT
  Age: 39 Year
  Sex: Female
  Weight: 96 kg

DRUGS (5)
  1. ENOXAPARIN SODIUM [Suspect]
     Active Substance: ENOXAPARIN SODIUM
     Indication: Thrombosis prophylaxis
     Dosage: 40 MG
     Route: 058
     Dates: start: 20240523, end: 20240625
  2. ENOXAPARIN SODIUM [Suspect]
     Active Substance: ENOXAPARIN SODIUM
     Indication: Haematoma evacuation
     Dosage: 40 MG
     Route: 058
     Dates: start: 20240527, end: 20240601
  3. AMOXICILLIN\CLAVULANATE POTASSIUM [Concomitant]
     Active Substance: AMOXICILLIN\CLAVULANATE POTASSIUM
     Dosage: 875/125 MG
     Route: 048
     Dates: start: 20240601, end: 20240606
  4. METRONIDAZOLE [Concomitant]
     Active Substance: METRONIDAZOLE
     Dosage: 1000 MG, QD
     Route: 048
     Dates: start: 20240528, end: 20240531
  5. CEFUROXIME [Concomitant]
     Active Substance: CEFUROXIME
     Indication: Haematoma infection
     Dosage: 4.5 G
     Route: 042
     Dates: start: 20240528, end: 20240531

REACTIONS (1)
  - Venous thrombosis [Unknown]

NARRATIVE: CASE EVENT DATE: 20240614
